FAERS Safety Report 7529122-3 (Version None)
Quarter: 2011Q2

REPORT INFORMATION
  Report Type: 
  Country: None (occurrence: None)
  Receive Date: 20110607
  Receipt Date: 20110523
  Transmission Date: 20111010
  Serious: No
  Sender: FDA-Public Use
  Company Number: US-B.I. PHARMACEUTICALS,INC./RIDGEFIELD-2011-BP-09029BP

PATIENT
  Sex: Female

DRUGS (9)
  1. SPIRIVA [Suspect]
     Indication: CHRONIC OBSTRUCTIVE PULMONARY DISEASE
  2. NEXIUM [Concomitant]
     Dosage: 40 MG
  3. SLO FE [Concomitant]
  4. PROAIR HFA [Concomitant]
  5. PROCARDIA XL [Concomitant]
     Dosage: 60 MG
  6. ATENOLOL [Concomitant]
     Dosage: 100 MG
  7. SPIRIVA [Suspect]
     Indication: ASTHMA
     Route: 055
     Dates: end: 20110326
  8. PRAVACHOL [Concomitant]
     Dosage: 40 MG
  9. LASIX [Concomitant]
     Dosage: 40 MG

REACTIONS (1)
  - HALLUCINATION, VISUAL [None]
